FAERS Safety Report 6439639-0 (Version None)
Quarter: 2009Q4

REPORT INFORMATION
  Report Type: 
  Country: None (occurrence: None)
  Receive Date: 20091113
  Receipt Date: 20091104
  Transmission Date: 20100525
  Serious: Yes (Other)
  Sender: FDA-Public Use
  Company Number: JP-ABBOTT-09P-087-0595638-00

PATIENT
  Sex: Female

DRUGS (4)
  1. KALETRA [Suspect]
     Indication: HIV INFECTION
     Route: 048
     Dates: start: 20080401
  2. LAMIVUDINE [Concomitant]
     Indication: HIV INFECTION
     Route: 048
     Dates: start: 20080401
  3. ABACAVIR [Concomitant]
     Indication: HIV INFECTION
     Route: 048
     Dates: start: 20080401
  4. FERROUS FUMARATE [Concomitant]
     Indication: ANAEMIA
     Route: 048
     Dates: start: 20080529, end: 20081204

REACTIONS (1)
  - ABORTION INDUCED [None]
